FAERS Safety Report 9381411 (Version 2)
Quarter: 2013Q3

REPORT INFORMATION
  Report Type: Report from Study
  Country: BR (occurrence: BR)
  Receive Date: 20130703
  Receipt Date: 20130902
  Transmission Date: 20140515
  Serious: Yes (Hospitalization, Other)
  Sender: FDA-Public Use
  Company Number: PHHY2013BR042687

PATIENT
  Sex: Male

DRUGS (2)
  1. DIOVAN [Suspect]
     Indication: HYPERTENSION
     Dosage: 160 MG, UNK
  2. GLUCOVANCE [Concomitant]
     Indication: DIABETES MELLITUS
     Dosage: 1 DF (GLIB 12.5 MG,, METF 500MG), UNK

REACTIONS (5)
  - Nephrolithiasis [Not Recovered/Not Resolved]
  - Diabetes mellitus inadequate control [Not Recovered/Not Resolved]
  - Purpura [Not Recovered/Not Resolved]
  - Swelling [Recovering/Resolving]
  - Blood pressure abnormal [Not Recovered/Not Resolved]
